FAERS Safety Report 7556363-1 (Version None)
Quarter: 2011Q2

REPORT INFORMATION
  Report Type: 
  Country: None (occurrence: None)
  Receive Date: 20110620
  Receipt Date: 20110608
  Transmission Date: 20111010
  Serious: Yes (Death)
  Sender: FDA-Public Use
  Company Number: AU-ELI_LILLY_AND_COMPANY-AU201106001894

PATIENT
  Sex: Female

DRUGS (2)
  1. OXYGEN [Concomitant]
     Indication: PULMONARY FIBROSIS
  2. FORTEO [Suspect]
     Indication: OSTEOPOROSIS
     Dosage: 20 UG, QD
     Dates: start: 20100810

REACTIONS (1)
  - DEATH [None]
